FAERS Safety Report 10356895 (Version 2)
Quarter: 2014Q3

REPORT INFORMATION
  Report Type: Report from Study
  Country: US (occurrence: US)
  Receive Date: 20140801
  Receipt Date: 20140801
  Transmission Date: 20150326
  Serious: Yes (Other)
  Sender: FDA-Public Use
  Company Number: US-BAYER-2014-060315

PATIENT
  Age: 69 Year
  Sex: Male

DRUGS (2)
  1. STIVARGA [Suspect]
     Active Substance: REGORAFENIB
     Indication: METASTASES TO LIVER
     Dosage: TAKE 2 TABLETS EVERY DAY FOR 21 DAYS AND OFF 7 DAYS
     Route: 048
     Dates: start: 20140401, end: 20140723
  2. STIVARGA [Suspect]
     Active Substance: REGORAFENIB
     Indication: METASTASES TO LIVER
     Dosage: DAILY DOSE 120 MG
     Route: 048
     Dates: start: 20140404, end: 201404

REACTIONS (4)
  - Pain in extremity [Recovering/Resolving]
  - Off label use [None]
  - Hepatic cancer [None]
  - Drug ineffective for unapproved indication [None]

NARRATIVE: CASE EVENT DATE: 20140723
